FAERS Safety Report 17871719 (Version 1)
Quarter: 2020Q2

REPORT INFORMATION
  Report Type: Spontaneous
  Country: US (occurrence: US)
  Receive Date: 20200608
  Receipt Date: 20200608
  Transmission Date: 20200714
  Serious: No
  Sender: FDA-Public Use
  Company Number: None

PATIENT
  Age: 72 Year
  Sex: Male
  Weight: 83.25 kg

DRUGS (2)
  1. DICLOFENAC GEL [Suspect]
     Active Substance: DICLOFENAC
     Indication: TENOSYNOVITIS
     Route: 061
     Dates: start: 20200602, end: 20200606
  2. FOSAMAX [Suspect]
     Active Substance: ALENDRONATE SODIUM
     Dates: start: 20191101

REACTIONS (4)
  - Nausea [None]
  - Abdominal discomfort [None]
  - Dyspepsia [None]
  - Spinal fracture [None]

NARRATIVE: CASE EVENT DATE: 20200602
